FAERS Safety Report 15258290 (Version 1)
Quarter: 2018Q4

REPORT INFORMATION
  Report Type: Spontaneous
  Country: IN (occurrence: IN)
  Receive Date: 20180809
  Receipt Date: 20180809
  Transmission Date: 20190204
  Serious: No
  Sender: FDA-Public Use
  Company Number: IN-LUPIN PHARMACEUTICALS INC.-2017-03821

PATIENT
  Age: 20 Year
  Sex: Male

DRUGS (3)
  1. PYZINA 750 [Concomitant]
     Indication: TUBERCULOSIS
     Dosage: 2 DF, QD
     Route: 048
     Dates: start: 201706
  2. MACOX PLUS [Concomitant]
     Active Substance: ISONIAZID\RIFAMPIN
     Indication: TUBERCULOSIS
     Dosage: 1 DF, QD
     Route: 048
     Dates: start: 201706
  3. ETHAMBUTOL HYDROCHLORIDE TABLETS [Suspect]
     Active Substance: ETHAMBUTOL HYDROCHLORIDE
     Indication: TUBERCULOSIS
     Dosage: 1 DF, QD
     Route: 048
     Dates: start: 201706

REACTIONS (2)
  - Condition aggravated [Not Recovered/Not Resolved]
  - Abdominal discomfort [Not Recovered/Not Resolved]

NARRATIVE: CASE EVENT DATE: 201706
